FAERS Safety Report 8425800-2 (Version None)
Quarter: 2012Q2

REPORT INFORMATION
  Report Type: 
  Country: None (occurrence: None)
  Receive Date: 20120611
  Receipt Date: 20120605
  Transmission Date: 20120825
  Serious: No
  Sender: FDA-Public Use
  Company Number: US-PFIZER INC-2012135411

PATIENT
  Sex: Female
  Weight: 54.422 kg

DRUGS (2)
  1. MORPHINE SULFATE [Suspect]
     Indication: SURGERY
     Dosage: UNK
  2. AMLODIPINE [Concomitant]
     Indication: BLOOD PRESSURE ABNORMAL
     Dosage: 2.5 MG, DAILY

REACTIONS (1)
  - PSYCHOMOTOR HYPERACTIVITY [None]
